FAERS Safety Report 20434307 (Version 2)
Quarter: 2022Q2

REPORT INFORMATION
  Report Type: Report from Study
  Country: US (occurrence: US)
  Receive Date: 20220206
  Receipt Date: 20220413
  Transmission Date: 20220721
  Serious: Yes (Hospitalization)
  Sender: FDA-Public Use
  Company Number: US-NOVARTISPH-NVSC2022US023174

PATIENT
  Sex: Female

DRUGS (1)
  1. ILARIS [Suspect]
     Active Substance: CANAKINUMAB
     Indication: Rheumatoid arthritis
     Dosage: 300 MG, EVERY 4 WEEKS
     Route: 058
     Dates: start: 20211130

REACTIONS (3)
  - Discomfort [Unknown]
  - Crying [Unknown]
  - Circumstance or information capable of leading to medication error [Unknown]
